FAERS Safety Report 13510305 (Version 2)
Quarter: 2018Q2

REPORT INFORMATION
  Report Type: Spontaneous
  Country: US (occurrence: US)
  Receive Date: 20170503
  Receipt Date: 20180606
  Transmission Date: 20180711
  Serious: Yes (Hospitalization, Other)
  Sender: FDA-Public Use
  Company Number: US-ASTRAZENECA-2017SE43627

PATIENT
  Age: 946 Month
  Sex: Female

DRUGS (12)
  1. PRILOSEC [Suspect]
     Active Substance: OMEPRAZOLE MAGNESIUM
     Route: 048
     Dates: start: 2009, end: 20140813
  2. PREDNISONE. [Concomitant]
     Active Substance: PREDNISONE
  3. PLAVIX [Interacting]
     Active Substance: CLOPIDOGREL BISULFATE
     Route: 065
     Dates: start: 20140805
  4. PLAVIX [Interacting]
     Active Substance: CLOPIDOGREL BISULFATE
     Dosage: 1/2 DAILY
     Route: 065
     Dates: start: 20141031
  5. TOFACITINIB [Suspect]
     Active Substance: TOFACITINIB
     Indication: RHEUMATOID ARTHRITIS
     Route: 065
     Dates: start: 201502
  6. ASA [Concomitant]
     Active Substance: ASPIRIN
     Dates: start: 20140729, end: 20141024
  7. KEFLEX [Concomitant]
     Active Substance: CEPHALEXIN
     Indication: KNEE ARTHROPLASTY
     Dosage: 1 HOUR BEFORE ANY DENTAL OR SURGICAL PROCEDURE
  8. HYDROXYCHLOROQUINE [Concomitant]
     Active Substance: HYDROXYCHLOROQUINE
  9. TYLENOL [Concomitant]
     Active Substance: ACETAMINOPHEN
  10. LEVOTHYROXINE. [Concomitant]
     Active Substance: LEVOTHYROXINE
  11. LISINOPRIL. [Suspect]
     Active Substance: LISINOPRIL
     Route: 048
     Dates: start: 20140918
  12. LIPITOR [Concomitant]
     Active Substance: ATORVASTATIN CALCIUM

REACTIONS (12)
  - Memory impairment [Unknown]
  - Body height decreased [Unknown]
  - Felty^s syndrome [Unknown]
  - Epistaxis [Unknown]
  - Drug interaction [Unknown]
  - Cerebrovascular accident [Unknown]
  - Immunosuppression [Unknown]
  - Cystitis [Unknown]
  - Influenza [Unknown]
  - Arthropathy [Not Recovered/Not Resolved]
  - Contusion [Unknown]
  - White blood cell count decreased [Unknown]

NARRATIVE: CASE EVENT DATE: 201408
